FAERS Safety Report 14207462 (Version 1)
Quarter: 2017Q4

REPORT INFORMATION
  Report Type: Spontaneous
  Country: US (occurrence: US)
  Receive Date: 20171121
  Receipt Date: 20171121
  Transmission Date: 20180321
  Serious: No
  Sender: FDA-Public Use
  Company Number: US-JNJFOC-20171011860

PATIENT
  Sex: Male
  Weight: 127 kg

DRUGS (5)
  1. FENOFIBRATE. [Concomitant]
     Active Substance: FENOFIBRATE
  2. VITAMIN D3 [Concomitant]
     Active Substance: CHOLECALCIFEROL
  3. IMBRUVICA [Suspect]
     Active Substance: IBRUTINIB
     Indication: CHRONIC LYMPHOCYTIC LEUKAEMIA
     Route: 048
     Dates: start: 20170619
  4. ASPIRIN. [Concomitant]
     Active Substance: ASPIRIN
  5. HYDROCHLOROTHIAZIDE W/OLMESARTAN [Concomitant]
     Active Substance: HYDROCHLOROTHIAZIDE\OLMESARTAN MEDOXOMIL

REACTIONS (1)
  - Nausea [Unknown]
